FAERS Safety Report 9657108 (Version 2)
Quarter: 2013Q4

REPORT INFORMATION
  Report Type: Report from Study
  Country: KR (occurrence: KR)
  Receive Date: 20131030
  Receipt Date: 20131030
  Transmission Date: 20140711
  Serious: Yes (Death)
  Sender: FDA-Public Use
  Company Number: KR-BAYER-2013-117091

PATIENT
  Age: 43 Year
  Sex: Male
  Weight: 86 kg

DRUGS (4)
  1. NEXAVAR [Suspect]
     Indication: HEPATOCELLULAR CARCINOMA
     Dosage: DAILY DOSE 800 MG
     Route: 048
     Dates: start: 20110906, end: 20110923
  2. ALDACTONE [SPIRONOLACTONE] [Concomitant]
     Dosage: 100MG DAILY
     Dates: start: 20110906
  3. LASIX [Concomitant]
     Dosage: 20MG DAILY
     Dates: start: 20110906
  4. BARACLUDE [Concomitant]

REACTIONS (1)
  - Myalgia [Fatal]
